FAERS Safety Report 17873563 (Version 2)
Quarter: 2020Q2

REPORT INFORMATION
  Report Type: Report from Study
  Country: None (occurrence: US)
  Receive Date: 20200609
  Receipt Date: 20200626
  Transmission Date: 20200714
  Serious: Yes (Hospitalization)
  Sender: FDA-Public Use
  Company Number: US-ABBVIE-20K-163-3430903-00

PATIENT
  Age: 75 Year
  Sex: Male
  Weight: 56.75 kg

DRUGS (17)
  1. QUETIAPINE. [Concomitant]
     Active Substance: QUETIAPINE
     Indication: PRODUCT USED FOR UNKNOWN INDICATION
     Route: 048
  2. VOLTAREN [Concomitant]
     Active Substance: DICLOFENAC SODIUM
     Indication: PAIN
     Route: 061
  3. MEMANTINE. [Concomitant]
     Active Substance: MEMANTINE
     Indication: PARKINSON^S DISEASE
     Route: 048
  4. AMANTADINE. [Concomitant]
     Active Substance: AMANTADINE HYDROCHLORIDE
     Indication: PARKINSON^S DISEASE
     Route: 048
  5. APOKYN [Concomitant]
     Active Substance: APOMORPHINE HYDROCHLORIDE
     Indication: PARKINSON^S DISEASE
     Route: 058
  6. PYRIDOSTIGMINE [Concomitant]
     Active Substance: PYRIDOSTIGMINE
     Indication: PRODUCT USED FOR UNKNOWN INDICATION
     Route: 048
  7. GABAPENTIN. [Concomitant]
     Active Substance: GABAPENTIN
     Indication: NEURALGIA
     Route: 048
  8. LINZESS [Concomitant]
     Active Substance: LINACLOTIDE
     Indication: CONSTIPATION
     Route: 048
  9. MELATONIN [Concomitant]
     Active Substance: MELATONIN
     Indication: SLEEP DISORDER
     Route: 048
  10. SEROQUEL [Concomitant]
     Active Substance: QUETIAPINE FUMARATE
     Indication: HALLUCINATION
  11. OMEPRAZOLE. [Concomitant]
     Active Substance: OMEPRAZOLE
     Indication: GASTROOESOPHAGEAL REFLUX DISEASE
     Route: 048
  12. FINASTERIDE. [Concomitant]
     Active Substance: FINASTERIDE
     Indication: PROSTATIC DISORDER
     Route: 048
  13. AMANTADINE. [Concomitant]
     Active Substance: AMANTADINE HYDROCHLORIDE
     Indication: FUNGAL INFECTION
  14. MIRALAX [Concomitant]
     Active Substance: POLYETHYLENE GLYCOL 3350
     Indication: CONSTIPATION
     Dosage: 17 GM/DOSE
     Route: 048
  15. DUOPA [Suspect]
     Active Substance: CARBIDOPA\LEVODOPA
     Indication: PARKINSON^S DISEASE
     Route: 050
     Dates: start: 20170510
  16. EXELON [Concomitant]
     Active Substance: RIVASTIGMINE TARTRATE
     Indication: PARKINSON^S DISEASE
     Dosage: 4.5 MG/24 HOUR
     Route: 061
  17. MICONAZOLE. [Concomitant]
     Active Substance: MICONAZOLE
     Indication: FUNGAL INFECTION
     Route: 061

REACTIONS (14)
  - Pneumonitis [Recovering/Resolving]
  - Agitation [Recovering/Resolving]
  - Vomiting [Recovered/Resolved]
  - Aspiration [Recovered/Resolved]
  - Decreased appetite [Not Recovered/Not Resolved]
  - Dysphagia [Not Recovered/Not Resolved]
  - Speech disorder [Recovering/Resolving]
  - Hallucination [Recovering/Resolving]
  - Malnutrition [Recovered/Resolved]
  - Pharyngeal disorder [Not Recovered/Not Resolved]
  - Fall [Recovered/Resolved]
  - Weight decreased [Not Recovered/Not Resolved]
  - Parkinson^s disease [Not Recovered/Not Resolved]
  - Hospice care [Not Recovered/Not Resolved]

NARRATIVE: CASE EVENT DATE: 202005
